FAERS Safety Report 7569792-7 (Version None)
Quarter: 2011Q2

REPORT INFORMATION
  Report Type: 
  Country: None (occurrence: None)
  Receive Date: 20110621
  Receipt Date: 20110621
  Transmission Date: 20111010
  Serious: No
  Sender: FDA-Public Use
  Company Number: None

PATIENT
  Sex: Female
  Weight: 61.2356 kg

DRUGS (1)
  1. ARIMIDEX [Suspect]
     Indication: BREAST CANCER
     Dosage: 1MG 1 @ DAY
     Dates: start: 20100701, end: 20110601

REACTIONS (13)
  - DEPRESSION [None]
  - RESTLESS LEGS SYNDROME [None]
  - ALOPECIA [None]
  - AMNESIA [None]
  - INSOMNIA [None]
  - HEADACHE [None]
  - JOINT DISLOCATION [None]
  - WEIGHT INCREASED [None]
  - ARTHRALGIA [None]
  - PREMATURE AGEING [None]
  - VULVOVAGINAL DRYNESS [None]
  - ANGER [None]
  - FATIGUE [None]
